FAERS Safety Report 21206025 (Version 1)
Quarter: 2022Q3

REPORT INFORMATION
  Report Type: Spontaneous
  Country: US (occurrence: None)
  Receive Date: 20220811
  Receipt Date: 20220811
  Transmission Date: 20221026
  Serious: Yes (Hospitalization)
  Sender: FDA-Public Use
  Company Number: None

PATIENT
  Age: 88 Year
  Sex: Male
  Weight: 79.8 kg

DRUGS (2)
  1. NIRMATRELVIR\RITONAVIR [Suspect]
     Active Substance: NIRMATRELVIR\RITONAVIR
     Indication: COVID-19
     Dosage: 3 DF  DOSAGE FORM TWICE A DAY ORAL?
     Route: 048
     Dates: start: 20220721, end: 20220726
  2. FELODIPINE [Suspect]
     Active Substance: FELODIPINE
     Indication: Hypertension
     Dosage: 1 DF
     Dates: start: 20140116, end: 20220722

REACTIONS (4)
  - Fall [None]
  - Anal incontinence [None]
  - Hypotension [None]
  - Therapy interrupted [None]

NARRATIVE: CASE EVENT DATE: 20220722
